FAERS Safety Report 7238509-8 (Version None)
Quarter: 2011Q1

REPORT INFORMATION
  Report Type: 
  Country: None (occurrence: None)
  Receive Date: 20110121
  Receipt Date: 20110118
  Transmission Date: 20110831
  Serious: Yes (Hospitalization, Other)
  Sender: FDA-Public Use
  Company Number: US-ROXANE LABORATORIES, INC.-2011-RO-00078RO

PATIENT
  Age: 61 Year
  Sex: Male

DRUGS (4)
  1. MYCOPHENOLATE MOFETIL [Suspect]
     Indication: RENAL TRANSPLANT
  2. PREDNISONE [Suspect]
     Indication: RENAL TRANSPLANT
  3. INSULIN [Suspect]
     Indication: DIABETES MELLITUS
  4. CYCLOSPORINE [Suspect]
     Indication: RENAL TRANSPLANT

REACTIONS (2)
  - CARDIAC FAILURE CONGESTIVE [None]
  - COLITIS [None]
